FAERS Safety Report 21415781 (Version 2)
Quarter: 2022Q4

REPORT INFORMATION
  Report Type: Spontaneous
  Country: FR (occurrence: FR)
  Receive Date: 20221006
  Receipt Date: 20221024
  Transmission Date: 20230113
  Serious: Yes (Hospitalization, Other)
  Sender: FDA-Public Use
  Company Number: None

PATIENT
  Age: 71 Year
  Sex: Female
  Weight: 62.3 kg

DRUGS (6)
  1. CIPROFLOXACIN [Suspect]
     Active Substance: CIPROFLOXACIN
     Indication: Pneumonia aspiration
     Dosage: UNK (CIPROFLOXACIN SALT NOT ROCEPHINE RELAY, ROUTE OF PNEUMONIA ASPIRATION DEC 2021/ SPECIFIED (CIPR
     Route: 065
     Dates: start: 202112, end: 202112
  2. CEFTRIAXONE SODIUM [Suspect]
     Active Substance: CEFTRIAXONE SODIUM
     Indication: Pneumonia aspiration
     Dosage: UNK (DOSAGE AND DURATION NOT SPECIFIED.)
     Route: 042
     Dates: start: 202112, end: 202112
  3. CEFTRIAXONE [Suspect]
     Active Substance: CEFTRIAXONE
     Indication: Lung disorder
     Dosage: UNK (DOSAGE NOT SPECIFIED)
     Route: 042
     Dates: start: 20220106, end: 20220113
  4. METRONIDAZOLE [Suspect]
     Active Substance: METRONIDAZOLE
     Indication: Pneumonia aspiration
     Dosage: UNK (ROCPHINE RELAY, DOSAGES AND ROUTE OF ADMINISTRATION NOT SPECIFIED)
     Route: 065
     Dates: start: 202112, end: 202112
  5. METRONIDAZOLE [Suspect]
     Active Substance: METRONIDAZOLE
     Indication: Lung disorder
     Dosage: UNK (DOSAGES AND ROUTE OF ADMINISTRATION NOT SPECIFIED)
     Route: 065
     Dates: start: 20220106, end: 20220112
  6. CEFTRIAXONE SODIUM [Suspect]
     Active Substance: CEFTRIAXONE SODIUM
     Indication: Pneumonia aspiration
     Dosage: POSOLOGIE ET DUR?E NON PR?CIS?ES
     Route: 042
     Dates: start: 202112, end: 202112

REACTIONS (1)
  - Clostridium difficile infection [Recovered/Resolved]

NARRATIVE: CASE EVENT DATE: 20220124
